FAERS Safety Report 19206200 (Version 1)
Quarter: 2021Q2

REPORT INFORMATION
  Report Type: Spontaneous
  Country: FR (occurrence: FR)
  Receive Date: 20210503
  Receipt Date: 20210503
  Transmission Date: 20210717
  Serious: Yes (Hospitalization, Other)
  Sender: FDA-Public Use
  Company Number: FR-PFIZER INC-2021446444

PATIENT
  Age: 46 Year
  Sex: Male

DRUGS (11)
  1. DALACINE [Suspect]
     Active Substance: CLINDAMYCIN
     Dosage: UNK
     Route: 065
     Dates: start: 20201207, end: 20201207
  2. ZAMUDOL LP [Suspect]
     Active Substance: TRAMADOL HYDROCHLORIDE
     Dosage: 200 MG (FREQ:.5 D)
     Route: 065
     Dates: start: 20201001
  3. PARACETAMOL [Suspect]
     Active Substance: ACETAMINOPHEN
     Dosage: 500 MG
     Route: 065
     Dates: start: 20201001
  4. CONTRAMAL [Suspect]
     Active Substance: TRAMADOL HYDROCHLORIDE
     Dosage: 150 MG (FREQ:.33 D)
     Dates: start: 20201001
  5. DEROXAT [Suspect]
     Active Substance: PAROXETINE HYDROCHLORIDE
     Dosage: 20 MG, 1X/DAY
     Route: 065
     Dates: start: 20201001, end: 20201127
  6. SERESTA [Suspect]
     Active Substance: OXAZEPAM
     Dosage: 10 MG
     Route: 065
     Dates: start: 20201001
  7. BACTRIM [Suspect]
     Active Substance: SULFAMETHOXAZOLE\TRIMETHOPRIM
     Dosage: UNK
     Route: 065
     Dates: start: 20201001
  8. PRIVIGEN [Suspect]
     Active Substance: HUMAN IMMUNOGLOBULIN G
     Dosage: UNK
     Route: 065
  9. CEFTRIAXONE. [Suspect]
     Active Substance: CEFTRIAXONE
     Dosage: 1 G
     Route: 065
     Dates: start: 20201001, end: 20201009
  10. VANCOMYCIN [Suspect]
     Active Substance: VANCOMYCIN
     Indication: BACTERAEMIA
     Dosage: UNK
     Route: 042
     Dates: start: 20201001
  11. VITAMIN K1 [Suspect]
     Active Substance: PHYTONADIONE
     Dosage: 10 MG, WEEKLY
     Route: 065
     Dates: start: 20201001

REACTIONS (7)
  - Infection [Unknown]
  - Bacteraemia [Unknown]
  - Pneumonia staphylococcal [Unknown]
  - Hyper IgE syndrome [Unknown]
  - Staphylococcal infection [Unknown]
  - Weight decreased [Unknown]
  - Gynaecomastia [Unknown]

NARRATIVE: CASE EVENT DATE: 202010
